FAERS Safety Report 15245705 (Version 1)
Quarter: 2018Q3

REPORT INFORMATION
  Report Type: Spontaneous
  Country: US (occurrence: US)
  Receive Date: 20180713
  Receipt Date: 20180713
  Transmission Date: 20181010
  Serious: Yes (Disabling)
  Sender: FDA-Public Use
  Company Number: None

PATIENT
  Age: 39 Year
  Sex: Female
  Weight: 70.31 kg

DRUGS (2)
  1. BIRTH CONTROL PILLS [Concomitant]
     Active Substance: UNSPECIFIED INGREDIENT
  2. LEVOFLOXACIN. [Suspect]
     Active Substance: LEVOFLOXACIN
     Indication: OTITIS MEDIA
     Route: 048
     Dates: start: 20180619, end: 20180622

REACTIONS (7)
  - Paraesthesia [None]
  - Arthralgia [None]
  - Tendon pain [None]
  - Tendonitis [None]
  - Pain [None]
  - Gait disturbance [None]
  - Impaired work ability [None]

NARRATIVE: CASE EVENT DATE: 20180621
